FAERS Safety Report 22948163 (Version 2)
Quarter: 2023Q4

REPORT INFORMATION
  Report Type: Spontaneous
  Country: BR (occurrence: BR)
  Receive Date: 20230915
  Receipt Date: 20231027
  Transmission Date: 20240109
  Serious: Yes (Other)
  Sender: FDA-Public Use
  Company Number: BR-ORGANON-O2306BRA001553

PATIENT
  Age: 21 Year
  Sex: Female
  Weight: 87 kg

DRUGS (5)
  1. ETONOGESTREL [Suspect]
     Active Substance: ETONOGESTREL
     Indication: Contraception
     Dosage: 1 IMPLANT
     Route: 059
     Dates: start: 20230510
  2. TENOFOVIR + LAMIVUDINE [LAMIVUDINE;TENOFOVIR DISOPROXIL FUMARATE] [Concomitant]
     Indication: HIV infection
     Dosage: 300 MILLIGRAM, 1 TABLET EVERY DAY IN THE MORNING
     Route: 048
     Dates: start: 2023, end: 2023
  3. TENOFOVIR + LAMIVUDINE [LAMIVUDINE;TENOFOVIR DISOPROXIL FUMARATE] [Concomitant]
     Dosage: 300 MILLIGRAM, EVERY DAY IN THE MORNING
     Route: 048
     Dates: start: 202306
  4. DOLUTEGRAVIR SODIUM [Concomitant]
     Active Substance: DOLUTEGRAVIR SODIUM
     Indication: HIV infection
     Dosage: 50 MILLIGRAM, 1 TABLET EVERDAY IN THE MORNING
     Route: 048
     Dates: start: 2023, end: 2023
  5. DOLUTEGRAVIR SODIUM [Concomitant]
     Active Substance: DOLUTEGRAVIR SODIUM
     Dosage: 50 MILLIGRAM, EVERDAY IN THE MORNING
     Route: 048
     Dates: start: 202306

REACTIONS (4)
  - Pregnancy with implant contraceptive [Not Recovered/Not Resolved]
  - Menstruation normal [Unknown]
  - Unintended pregnancy [Not Recovered/Not Resolved]
  - Weight increased [Unknown]

NARRATIVE: CASE EVENT DATE: 20230607
